APPROVED DRUG PRODUCT: FENOGLIDE
Active Ingredient: FENOFIBRATE
Strength: 120MG
Dosage Form/Route: TABLET;ORAL
Application: N022118 | Product #002
Applicant: SALIX PHARMACEUTICALS INC
Approved: Aug 10, 2007 | RLD: Yes | RS: No | Type: DISCN